FAERS Safety Report 8522397-3 (Version None)
Quarter: 2012Q3

REPORT INFORMATION
  Report Type: 
  Country: None (occurrence: None)
  Receive Date: 20120719
  Receipt Date: 20120711
  Transmission Date: 20120928
  Serious: No
  Sender: FDA-Public Use
  Company Number: US-B.I. PHARMACEUTICALS,INC./RIDGEFIELD-2012-BP-15505BP

PATIENT
  Age: 72 Year
  Sex: Female

DRUGS (9)
  1. ADVAIR DISKUS 100/50 [Concomitant]
     Indication: CHRONIC OBSTRUCTIVE PULMONARY DISEASE
     Route: 055
  2. SPIRIVA [Suspect]
     Indication: CHRONIC OBSTRUCTIVE PULMONARY DISEASE
     Dosage: 18 MCG
     Route: 055
     Dates: start: 20120619
  3. PROVENTIL [Concomitant]
     Indication: CHRONIC OBSTRUCTIVE PULMONARY DISEASE
     Route: 055
  4. SIMVASTATIN [Concomitant]
     Indication: BLOOD CHOLESTEROL INCREASED
     Route: 048
  5. EXTRA STRENGTH TYLENOL [Concomitant]
     Indication: ARTHRITIS
     Route: 048
  6. ALBUTEROL [Concomitant]
     Indication: CHRONIC OBSTRUCTIVE PULMONARY DISEASE
     Route: 055
  7. BENICAR [Concomitant]
     Indication: HYPERTENSION
     Route: 048
  8. EXTRA STRENGTH TYLENOL [Concomitant]
     Indication: BACK PAIN
  9. MEDICATION NOT FURTHER SPECIFIED [Concomitant]
     Indication: BACK PAIN

REACTIONS (3)
  - VISUAL IMPAIRMENT [None]
  - VISION BLURRED [None]
  - GLOSSODYNIA [None]
